FAERS Safety Report 5566716-9 (Version None)
Quarter: 2007Q4

REPORT INFORMATION
  Report Type: 
  Country: None (occurrence: None)
  Receive Date: 20071219
  Receipt Date: 20071219
  Transmission Date: 20080405
  Serious: Yes (Disabling)
  Sender: FDA-Public Use
  Company Number: A0699653A

PATIENT
  Age: 48 Year
  Sex: Female

DRUGS (1)
  1. ALLI [Suspect]
     Route: 048
     Dates: start: 20071101

REACTIONS (12)
  - ABDOMINAL DISTENSION [None]
  - CEREBROVASCULAR ACCIDENT [None]
  - EYELID PTOSIS [None]
  - FACIAL PAIN [None]
  - FEELING ABNORMAL [None]
  - HEMIPARESIS [None]
  - HYPOAESTHESIA [None]
  - HYPOAESTHESIA FACIAL [None]
  - ILL-DEFINED DISORDER [None]
  - MOVEMENT DISORDER [None]
  - PAIN IN EXTREMITY [None]
  - SENSORY DISTURBANCE [None]
